FAERS Safety Report 4483470-2 (Version None)
Quarter: 2004Q4

REPORT INFORMATION
  Report Type: 
  Country: None (occurrence: None)
  Receive Date: 20041020
  Receipt Date: 20041006
  Transmission Date: 20050328
  Serious: Yes (Hospitalization)
  Sender: FDA-Public Use
  Company Number: 2004-0007606

PATIENT
  Sex: Male

DRUGS (6)
  1. EMTRIVA [Suspect]
  2. VIREAD [Suspect]
  3. SEPTRA [Concomitant]
  4. LOPINAVIR [Concomitant]
  5. RITONAVIR [Concomitant]
  6. OXYMETHOLONE (OXYMETHOLONE) [Concomitant]

REACTIONS (2)
  - HAEMODIALYSIS [None]
  - RENAL FAILURE ACUTE [None]
